FAERS Safety Report 21332496 (Version 1)
Quarter: 2022Q3

REPORT INFORMATION
  Report Type: Spontaneous
  Country: IL (occurrence: None)
  Receive Date: 20220914
  Receipt Date: 20220914
  Transmission Date: 20221026
  Serious: Yes (Hospitalization)
  Sender: FDA-Public Use
  Company Number: 2022A311615

PATIENT
  Age: 76 Year
  Sex: Male

DRUGS (2)
  1. EVUSHELD [Suspect]
     Active Substance: CILGAVIMAB\TIXAGEVIMAB
     Dosage: FIRST DOSE OF EVUSHELD
     Route: 030
     Dates: start: 20220217
  2. EVUSHELD [Suspect]
     Active Substance: CILGAVIMAB\TIXAGEVIMAB
     Dosage: SECOND EVUSHELD DOSE
     Route: 030
     Dates: start: 20220731

REACTIONS (10)
  - Myalgia [Recovered/Resolved]
  - Pyrexia [Recovered/Resolved]
  - Muscular weakness [Recovered/Resolved]
  - Somnolence [Recovered/Resolved]
  - Tremor [Not Recovered/Not Resolved]
  - Gait disturbance [Unknown]
  - Confusional state [Unknown]
  - Memory impairment [Unknown]
  - Cognitive disorder [Not Recovered/Not Resolved]
  - Encephalitis [Unknown]

NARRATIVE: CASE EVENT DATE: 20220731
